FAERS Safety Report 24875370 (Version 1)
Quarter: 2025Q1

REPORT INFORMATION
  Report Type: Spontaneous
  Country: US (occurrence: US)
  Receive Date: 20250122
  Receipt Date: 20250122
  Transmission Date: 20250408
  Serious: No
  Sender: MERCK
  Company Number: US-009507513-2501USA005311

PATIENT
  Age: 73 Year
  Sex: Female
  Weight: 58.05 kg

DRUGS (31)
  1. WINREVAIR [Suspect]
     Active Substance: SOTATERCEPT-CSRK
     Indication: Product used for unknown indication
  2. REMODULIN [Suspect]
     Active Substance: TREPROSTINIL
     Indication: Pulmonary arterial hypertension
     Route: 058
     Dates: start: 20240418
  3. BIOTIN [Concomitant]
     Active Substance: BIOTIN
  4. METHOCARBAMOL [Concomitant]
     Active Substance: METHOCARBAMOL
  5. OMEPRAZOLE [Concomitant]
     Active Substance: OMEPRAZOLE
  6. WARFARIN SODIUM [Concomitant]
     Active Substance: WARFARIN SODIUM
  7. AZATHIOPRINE [Concomitant]
     Active Substance: AZATHIOPRINE
  8. PREDNISONE [Concomitant]
     Active Substance: PREDNISONE
  9. SODIUM CHLORIDE [Concomitant]
     Active Substance: SODIUM CHLORIDE
  10. MUPIROCIN [Concomitant]
     Active Substance: MUPIROCIN
  11. KETAMINE HYDROCHLORIDE [Concomitant]
     Active Substance: KETAMINE HYDROCHLORIDE
  12. LECITHIN [Concomitant]
     Active Substance: LECITHIN
  13. REVATIO [Concomitant]
     Active Substance: SILDENAFIL CITRATE
  14. YUVAFEM [Concomitant]
     Active Substance: ESTRADIOL HEMIHYDRATE
  15. CALCIUM [Concomitant]
     Active Substance: CALCIUM
  16. DOFETILIDE [Concomitant]
     Active Substance: DOFETILIDE
  17. CEFADROXIL [Concomitant]
     Active Substance: CEFADROXIL
  18. TRAMADOL HCL [Concomitant]
     Active Substance: TRAMADOL HYDROCHLORIDE
  19. VITAMINS [Concomitant]
     Active Substance: VITAMINS
  20. METOPROLOL SUCCINATE [Concomitant]
     Active Substance: METOPROLOL SUCCINATE
  21. CLONIDINE [Concomitant]
     Active Substance: CLONIDINE
  22. KETOPROFEN [Concomitant]
     Active Substance: KETOPROFEN
  23. SPIRONOLACTONE [Concomitant]
     Active Substance: SPIRONOLACTONE
  24. OXYGEN [Concomitant]
     Active Substance: OXYGEN
  25. LIDOCAINE HYDROCHLORIDE [Concomitant]
     Active Substance: LIDOCAINE HYDROCHLORIDE
  26. VOLTAREN [Concomitant]
     Active Substance: DICLOFENAC SODIUM
  27. TYLENOL EXTRA STRENGTH [Concomitant]
     Active Substance: ACETAMINOPHEN
  28. AMITRIPTYLINE HYDROCHLORIDE [Concomitant]
     Active Substance: AMITRIPTYLINE HYDROCHLORIDE
  29. GABAPENTIN [Concomitant]
     Active Substance: GABAPENTIN
  30. POLOXAMER [Concomitant]
     Active Substance: POLOXAMER
  31. TORSEMIDE [Concomitant]
     Active Substance: TORSEMIDE

REACTIONS (1)
  - Injection site reaction [Unknown]

NARRATIVE: CASE EVENT DATE: 20250105
